FAERS Safety Report 6096927-8 (Version None)
Quarter: 2009Q1

REPORT INFORMATION
  Report Type: 
  Country: None (occurrence: None)
  Receive Date: 20090227
  Receipt Date: 20090222
  Transmission Date: 20090719
  Serious: Yes (Hospitalization)
  Sender: FDA-Public Use
  Company Number: RU-JNJFOC-20090205859

PATIENT
  Age: 19 Year
  Sex: Male

DRUGS (1)
  1. INVEGA [Suspect]
     Indication: SCHIZOAFFECTIVE DISORDER
     Route: 048

REACTIONS (7)
  - BLOOD PRESSURE DECREASED [None]
  - DYSPNOEA [None]
  - EXTRAPYRAMIDAL DISORDER [None]
  - EYE ROLLING [None]
  - GASTRITIS EROSIVE [None]
  - MUSCLE TIGHTNESS [None]
  - TACHYCARDIA [None]
